FAERS Safety Report 6510750-9 (Version None)
Quarter: 2009Q4

REPORT INFORMATION
  Report Type: 
  Country: None (occurrence: None)
  Receive Date: 20091221
  Receipt Date: 20091221
  Transmission Date: 20100525
  Serious: Yes (Other)
  Sender: FDA-Public Use
  Company Number: None

PATIENT
  Age: 47 Year
  Sex: Male
  Weight: 72.5755 kg

DRUGS (4)
  1. CIPROFLOXACIN [Suspect]
     Indication: CYSTITIS
     Dosage: ONE TABLET EVERY 1 HRS BUCCAL
     Route: 002
     Dates: start: 20091211, end: 20091218
  2. TOLTERODINE TARTRATE [Suspect]
     Indication: CYSTITIS
     Dosage: ONE CAPSULE DAILY BUCCAL
     Route: 002
     Dates: start: 20091211, end: 20091218
  3. CEPHALEXIN [Concomitant]
  4. OXYBUTYNIN CHLORIDE [Concomitant]

REACTIONS (7)
  - CHILLS [None]
  - CONTUSION [None]
  - HYPERHIDROSIS [None]
  - INSOMNIA [None]
  - MUSCLE SPASMS [None]
  - OEDEMA PERIPHERAL [None]
  - URINARY RETENTION [None]
